FAERS Safety Report 5367542-6 (Version None)
Quarter: 2007Q2

REPORT INFORMATION
  Report Type: 
  Country: None (occurrence: None)
  Receive Date: 20070622
  Receipt Date: 20061107
  Transmission Date: 20071010
  Serious: No
  Sender: FDA-Public Use
  Company Number: US-ASTRAZENECA-2006UW22002

PATIENT
  Age: 2 Year
  Sex: Male
  Weight: 13.6 kg

DRUGS (4)
  1. PULMICORT RESPULES [Suspect]
     Indication: ASTHMA
     Route: 055
  2. XOPENEX [Concomitant]
  3. ALBUTEROL [Concomitant]
  4. ORAPRED [Concomitant]

REACTIONS (3)
  - DEHYDRATION [None]
  - THIRST [None]
  - TIC [None]
